FAERS Safety Report 10572881 (Version 1)
Quarter: 2014Q4

REPORT INFORMATION
  Report Type: Spontaneous
  Country: GB (occurrence: None)
  Receive Date: 20141106
  Receipt Date: 20141106
  Transmission Date: 20150529
  Serious: Yes (Other)
  Sender: FDA-Public Use
  Company Number: VAL_03514_2014

PATIENT
  Age: 34 Year
  Sex: Female

DRUGS (1)
  1. CARBAMAZEPINE. [Suspect]
     Active Substance: CARBAMAZEPINE
     Indication: EPILEPSY
     Dosage: DF
     Dates: start: 200310

REACTIONS (7)
  - Lupus-like syndrome [None]
  - Myalgia [None]
  - Photosensitivity reaction [None]
  - Leukopenia [None]
  - Disease recurrence [None]
  - Sjogren^s syndrome [None]
  - Arthralgia [None]
